FAERS Safety Report 21376313 (Version 3)
Quarter: 2022Q4

REPORT INFORMATION
  Report Type: Report from Study
  Country: FR (occurrence: FR)
  Receive Date: 20220926
  Receipt Date: 20221028
  Transmission Date: 20230113
  Serious: Yes (Disabling, Other)
  Sender: FDA-Public Use
  Company Number: FR-NOVARTISPH-NVSC2022FR216240

PATIENT
  Age: 57 Year
  Sex: Male
  Weight: 77 kg

DRUGS (5)
  1. PLUVICTO [Suspect]
     Active Substance: LUTETIUM LU-177 VIPIVOTIDE TETRAXETAN
     Indication: Prostate cancer
     Dosage: 7.400 MBQ, ONCE/SINGLE
     Route: 042
     Dates: start: 20220802, end: 20220802
  2. PLUVICTO [Suspect]
     Active Substance: LUTETIUM LU-177 VIPIVOTIDE TETRAXETAN
     Dosage: 7.400 MBQ, ONCE/SINGLE
     Route: 042
     Dates: start: 20220915, end: 20220915
  3. DECAPEPTYL [Concomitant]
     Indication: Prostate cancer
     Dosage: 11.5 (HALF YEARLY)
     Route: 065
  4. ALFUZOSIN [Concomitant]
     Active Substance: ALFUZOSIN
     Indication: Dysuria
     Dosage: 1 UNK, QD
     Route: 065
  5. LORAZEPAM [Concomitant]
     Active Substance: LORAZEPAM
     Indication: Anxiety
     Dosage: 1 UNK, QD
     Route: 065

REACTIONS (3)
  - Ischaemic stroke [Recovered/Resolved]
  - Aphasia [Recovered/Resolved]
  - Clonic convulsion [Recovered/Resolved]

NARRATIVE: CASE EVENT DATE: 20220812
